FAERS Safety Report 8531136-1 (Version None)
Quarter: 2012Q3

REPORT INFORMATION
  Report Type: 
  Country: None (occurrence: None)
  Receive Date: 20120711
  Receipt Date: 20120626
  Transmission Date: 20120928
  Serious: Yes (Other)
  Sender: FDA-Public Use
  Company Number: B0812067A

PATIENT
  Age: 59 Year

DRUGS (2)
  1. CARVEDILOL [Suspect]
     Indication: CARDIAC FAILURE CONGESTIVE
  2. RAMIPRIL [Concomitant]

REACTIONS (1)
  - CARDIOGENIC SHOCK [None]
